FAERS Safety Report 20040018 (Version 1)
Quarter: 2021Q4

REPORT INFORMATION
  Report Type: Spontaneous
  Country: RS (occurrence: RS)
  Receive Date: 20211106
  Receipt Date: 20211106
  Transmission Date: 20220303
  Serious: Yes (Other)
  Sender: FDA-Public Use
  Company Number: RS-009507513-2111SRB001270

PATIENT
  Sex: Male

DRUGS (2)
  1. KEYTRUDA [Suspect]
     Active Substance: PEMBROLIZUMAB
     Indication: Malignant melanoma
     Dosage: 200 MILLIGRAM, EVERY 3 WEEKS
     Route: 042
     Dates: start: 20180428
  2. KEYTRUDA [Suspect]
     Active Substance: PEMBROLIZUMAB
     Dosage: 400 MG, EVERY 6 WEEKS
     Dates: start: 202103

REACTIONS (9)
  - Brain oedema [Unknown]
  - Malignant neoplasm progression [Recovering/Resolving]
  - Therapeutic product effect incomplete [Unknown]
  - Gait disturbance [Recovering/Resolving]
  - Eastern Cooperative Oncology Group performance status worsened [Recovering/Resolving]
  - Therapy partial responder [Unknown]
  - Nervous system disorder [Unknown]
  - Radiation necrosis [Unknown]
  - Vertigo [Unknown]

NARRATIVE: CASE EVENT DATE: 20180501
